FAERS Safety Report 15934983 (Version 1)
Quarter: 2019Q1

REPORT INFORMATION
  Report Type: Report from Study
  Country: BR (occurrence: BR)
  Receive Date: 20190207
  Receipt Date: 20190207
  Transmission Date: 20190417
  Serious: Yes (Hospitalization)
  Sender: FDA-Public Use
  Company Number: BR-SHIRE-BR201903746

PATIENT

DRUGS (3)
  1. HYQVIA [Suspect]
     Active Substance: HUMAN IMMUNOGLOBULIN G\HYALURONIDASE RECOMBINANT HUMAN
     Dosage: 40 GRAM
     Route: 058
     Dates: start: 20181129
  2. HYQVIA [Suspect]
     Active Substance: HUMAN IMMUNOGLOBULIN G\HYALURONIDASE RECOMBINANT HUMAN
     Indication: PRIMARY IMMUNODEFICIENCY SYNDROME
     Dosage: 40 GRAM
     Route: 058
     Dates: start: 20181108
  3. HYQVIA [Suspect]
     Active Substance: HUMAN IMMUNOGLOBULIN G\HYALURONIDASE RECOMBINANT HUMAN
     Dosage: 40 GRAM
     Route: 058
     Dates: start: 20181115

REACTIONS (9)
  - Hypertension [Recovered/Resolved]
  - Malaise [Unknown]
  - Vomiting [Recovering/Resolving]
  - Pharyngitis [Recovered/Resolved]
  - Heart rate decreased [Recovered/Resolved]
  - Feeling abnormal [Unknown]
  - Diarrhoea [Recovering/Resolving]
  - Dyspnoea [Recovered/Resolved]
  - Tachycardia [Recovered/Resolved]

NARRATIVE: CASE EVENT DATE: 20190110
